FAERS Safety Report 8906464 (Version 1)
Quarter: 2012Q4

REPORT INFORMATION
  Report Type: Spontaneous
  Country: GB (occurrence: None)
  Receive Date: 20121108
  Receipt Date: 20121108
  Transmission Date: 20130627
  Serious: Yes (Life-Threatening)
  Sender: FDA-Public Use
  Company Number: CL-447-2012

PATIENT
  Age: 21 Year
  Sex: Female
  Weight: 60 kg

DRUGS (5)
  1. ONDANSETRON [Suspect]
     Indication: NAUSEA
     Route: 042
     Dates: start: 20120921, end: 20120921
  2. DIHYDROCODEINE [Concomitant]
  3. IBUPROFEN [Concomitant]
  4. PARACETAMOL [Concomitant]
  5. TEMAZEPAM [Concomitant]

REACTIONS (5)
  - Apnoea [None]
  - Nuchal rigidity [None]
  - Oculogyric crisis [None]
  - Posturing [None]
  - Monoplegia [None]
